FAERS Safety Report 9711389 (Version 2)
Quarter: 2013Q4

REPORT INFORMATION
  Report Type: Spontaneous
  Country: US (occurrence: US)
  Receive Date: 20131126
  Receipt Date: 20131126
  Transmission Date: 20140711
  Serious: No
  Sender: FDA-Public Use
  Company Number: US-BRISTOL-MYERS SQUIBB COMPANY-19232354

PATIENT
  Age: 82 Year
  Sex: Male
  Weight: 97.5 kg

DRUGS (1)
  1. BYETTA PEN DISPOSABLE [Suspect]
     Indication: DIABETES MELLITUS
     Route: 058

REACTIONS (3)
  - Drug dose omission [Unknown]
  - Weight decreased [Unknown]
  - Product quality issue [Unknown]
